FAERS Safety Report 6331620-5 (Version None)
Quarter: 2009Q3

REPORT INFORMATION
  Report Type: 
  Country: None (occurrence: None)
  Receive Date: 20090827
  Receipt Date: 20090819
  Transmission Date: 20100115
  Serious: Yes (Other)
  Sender: FDA-Public Use
  Company Number: PHHY2009CH35611

PATIENT
  Sex: Male

DRUGS (3)
  1. LESCOL [Suspect]
     Route: 065
  2. EZETROL [Suspect]
  3. SORTIS [Suspect]

REACTIONS (2)
  - CHEYNE-STOKES RESPIRATION [None]
  - RESTLESS LEGS SYNDROME [None]
